FAERS Safety Report 25947930 (Version 2)
Quarter: 2025Q4

REPORT INFORMATION
  Report Type: Spontaneous
  Country: EU (occurrence: EU)
  Receive Date: 20251022
  Receipt Date: 20251201
  Transmission Date: 20260117
  Serious: Yes (Hospitalization)
  Sender: INCYTE
  Company Number: EU-002147023-NVSC2025PL153692

PATIENT

DRUGS (4)
  1. RUXOLITINIB [Suspect]
     Active Substance: RUXOLITINIB
     Indication: Myelofibrosis
     Dosage: 20 MG, BID, (2X20MG)
     Route: 065
  2. RUXOLITINIB [Suspect]
     Active Substance: RUXOLITINIB
     Dosage: 10 MG, BID, (2X10MG)
     Route: 065
  3. RUXOLITINIB [Suspect]
     Active Substance: RUXOLITINIB
     Dosage: 15 MG , BID 2X15MG
     Route: 065
  4. METHYLPREDNISOLONE [Concomitant]
     Active Substance: METHYLPREDNISOLONE
     Indication: Product used for unknown indication
     Dosage: 16 MG, QD, (1X16 MG)
     Route: 065

REACTIONS (14)
  - Cardiac failure [Unknown]
  - Pneumonia [Unknown]
  - Asthenia [Unknown]
  - Dyspnoea exertional [Unknown]
  - Dizziness [Unknown]
  - Peripheral swelling [Unknown]
  - Pain in extremity [Unknown]
  - Blood creatinine increased [Unknown]
  - Night sweats [Recovered/Resolved]
  - Haemoglobin decreased [Unknown]
  - Platelet count decreased [Unknown]
  - Synovial cyst [Unknown]
  - Anaemia [Unknown]
  - Lipids abnormal [Unknown]
